FAERS Safety Report 5020986-4 (Version None)
Quarter: 2006Q2

REPORT INFORMATION
  Report Type: 
  Country: None (occurrence: None)
  Receive Date: 20060606
  Receipt Date: 20060606
  Transmission Date: 20061013
  Serious: No
  Sender: FDA-Public Use
  Company Number: None

PATIENT
  Sex: Female
  Weight: 77.5651 kg

DRUGS (1)
  1. DETROL LA [Suspect]
     Dosage: 4 MG   HS   PO
     Route: 048

REACTIONS (1)
  - RASH [None]
